FAERS Safety Report 10990747 (Version 3)
Quarter: 2015Q2

REPORT INFORMATION
  Report Type: Spontaneous
  Country: US (occurrence: US)
  Receive Date: 20150406
  Receipt Date: 20150501
  Transmission Date: 20150821
  Serious: No
  Sender: FDA-Public Use
  Company Number: US-PFIZER INC-2015117494

PATIENT
  Age: 48 Year
  Sex: Female
  Weight: 126 kg

DRUGS (5)
  1. OTEZLA [Suspect]
     Active Substance: APREMILAST
     Indication: PSORIATIC ARTHROPATHY
     Dosage: 30 MG, 2X/DAY
     Route: 048
     Dates: start: 200706, end: 200706
  2. TRAMADOL [Concomitant]
     Active Substance: TRAMADOL
  3. CELEBREX [Concomitant]
     Active Substance: CELECOXIB
  4. METHOTREXATE [Concomitant]
     Active Substance: METHOTREXATE
  5. XELJANZ [Suspect]
     Active Substance: TOFACITINIB CITRATE
     Indication: RHEUMATOID ARTHRITIS
     Dosage: 5 MG, 2X/DAY
     Route: 048
     Dates: start: 201502

REACTIONS (4)
  - Musculoskeletal discomfort [Unknown]
  - Headache [Unknown]
  - Vomiting [Unknown]
  - Musculoskeletal pain [Unknown]
